FAERS Safety Report 7806492-X (Version None)
Quarter: 2011Q4

REPORT INFORMATION
  Report Type: 
  Country: None (occurrence: None)
  Receive Date: 20111011
  Receipt Date: 20111001
  Transmission Date: 20120403
  Serious: Yes (Death, Other)
  Sender: FDA-Public Use
  Company Number: CO-GENZYME-CLOF-1001840

PATIENT
  Age: 11 Year
  Sex: Female
  Weight: 35 kg

DRUGS (7)
  1. HYDROCORTISONE [Concomitant]
     Indication: PRODUCT USED FOR UNKNOWN INDICATION
     Dosage: UNK
     Route: 065
  2. CLOLAR [Suspect]
     Indication: ACUTE LYMPHOCYTIC LEUKAEMIA
     Dosage: 60 MG (52 MG/M2), QDX5 (CYCLE 1)
     Route: 065
  3. CLOLAR [Suspect]
     Dosage: 60 MG (52 MG/M2), QDX5 (CYCLE 2)
     Route: 065
  4. ONDANSETRON [Concomitant]
     Indication: PRODUCT USED FOR UNKNOWN INDICATION
     Dosage: UNK
     Route: 065
  5. ACETAMINOPHEN [Concomitant]
     Indication: PRODUCT USED FOR UNKNOWN INDICATION
     Dosage: UNK
     Route: 065
  6. HYDROXYZINE [Concomitant]
     Indication: PRODUCT USED FOR UNKNOWN INDICATION
     Dosage: UNK
     Route: 065
  7. RANITIDINE [Concomitant]
     Indication: PRODUCT USED FOR UNKNOWN INDICATION
     Dosage: UNK
     Route: 065

REACTIONS (11)
  - LEUKOPENIA [None]
  - THROMBOCYTOPENIA [None]
  - SINUSITIS [None]
  - DEATH [None]
  - ANAEMIA [None]
  - KLEBSIELLA BACTERAEMIA [None]
  - LARGE INTESTINE PERFORATION [None]
  - NEUTROPENIC COLITIS [None]
  - PYREXIA [None]
  - STOMATITIS [None]
  - FEBRILE NEUTROPENIA [None]
